FAERS Safety Report 4408823-X (Version None)
Quarter: 2004Q3

REPORT INFORMATION
  Report Type: 
  Country: None (occurrence: None)
  Receive Date: 20040727
  Receipt Date: 20040716
  Transmission Date: 20050211
  Serious: Yes (Hospitalization)
  Sender: FDA-Public Use
  Company Number: IT-ROCHE-374745

PATIENT
  Age: 81 Year
  Sex: Female

DRUGS (7)
  1. ROCEPHIN [Suspect]
     Route: 030
     Dates: start: 20040711, end: 20040712
  2. THEO-DUR [Concomitant]
     Route: 048
  3. DIUREMID [Concomitant]
     Route: 048
  4. ANTACAL [Concomitant]
     Route: 048
  5. MEPRAL [Concomitant]
     Route: 048
  6. SYMBICORT [Concomitant]
     Route: 048
  7. MEMANTINE HCL [Concomitant]
     Dosage: REPORTED AS EBIXA.
     Route: 048

REACTIONS (2)
  - DERMATITIS EXFOLIATIVE [None]
  - RASH MACULO-PAPULAR [None]
